FAERS Safety Report 7795235-4 (Version None)
Quarter: 2011Q4

REPORT INFORMATION
  Report Type: 
  Country: None (occurrence: None)
  Receive Date: 20111004
  Receipt Date: 20110922
  Transmission Date: 20120403
  Serious: No
  Sender: FDA-Public Use
  Company Number: US-B.I. PHARMACEUTICALS,INC./RIDGEFIELD-2011-BP-22710BP

PATIENT
  Sex: Female

DRUGS (8)
  1. SERTRALINE HYDROCHLORIDE [Concomitant]
     Indication: ANXIETY
  2. COREG [Concomitant]
     Indication: HYPERTENSION
  3. VERAPAMIL [Concomitant]
     Indication: HYPERTENSION
  4. ASPIRIN [Concomitant]
     Indication: CARDIAC DISORDER
  5. LORAZEPAM [Concomitant]
     Indication: ANXIETY
  6. AMBIEN [Concomitant]
     Indication: SLEEP DISORDER
  7. FUROSEMIDE [Concomitant]
     Indication: HYPERTENSION
  8. PRADAXA [Suspect]
     Indication: ATRIAL FIBRILLATION
     Dosage: 300 MG
     Route: 048
     Dates: start: 20110701

REACTIONS (2)
  - BURNING SENSATION [None]
  - CHEST PAIN [None]
